FAERS Safety Report 24294188 (Version 3)
Quarter: 2024Q4

REPORT INFORMATION
  Report Type: Spontaneous
  Country: US (occurrence: US)
  Receive Date: 20240906
  Receipt Date: 20241212
  Transmission Date: 20250114
  Serious: Yes (Hospitalization, Other)
  Sender: BAXTER
  Company Number: US-BAXTER-2024BAX023862

PATIENT
  Age: 67 Year
  Sex: Female

DRUGS (4)
  1. CYCLOPHOSPHAMIDE [Suspect]
     Active Substance: CYCLOPHOSPHAMIDE
     Indication: Chemotherapy
     Dosage: 750 MILLIGRAM/SQ. METER, QD, INFUSION
     Route: 042
     Dates: start: 20240721, end: 20240723
  2. CYCLOPHOSPHAMIDE [Suspect]
     Active Substance: CYCLOPHOSPHAMIDE
     Indication: Lymphodepletion
  3. FLUDARABINE [Suspect]
     Active Substance: FLUDARABINE PHOSPHATE
     Indication: Chemotherapy
     Dosage: 30 MILLIGRAM/SQ. METER, QD
     Route: 042
     Dates: start: 20240721, end: 20240723
  4. FLUDARABINE [Suspect]
     Active Substance: FLUDARABINE PHOSPHATE
     Indication: Lymphodepletion

REACTIONS (7)
  - Device related infection [Recovered/Resolved]
  - Catheter site erythema [Unknown]
  - Catheter site pain [Unknown]
  - Chills [Unknown]
  - Nausea [Unknown]
  - Febrile neutropenia [Not Recovered/Not Resolved]
  - Acute myeloid leukaemia [Unknown]

NARRATIVE: CASE EVENT DATE: 20240813
